FAERS Safety Report 16749870 (Version 1)
Quarter: 2019Q3

REPORT INFORMATION
  Report Type: Spontaneous
  Country: FR (occurrence: FR)
  Receive Date: 20190828
  Receipt Date: 20190828
  Transmission Date: 20191005
  Serious: Yes (Hospitalization)
  Sender: FDA-Public Use
  Company Number: FR-MYLANLABS-2019M1080206

PATIENT
  Age: 81 Year
  Sex: Male
  Weight: 84 kg

DRUGS (3)
  1. NEORAL [Interacting]
     Active Substance: CYCLOSPORINE
     Indication: RENAL TRANSPLANT
     Dosage: 200 MILLIGRAM, QD
     Route: 048
     Dates: start: 20190123, end: 20190125
  2. XENETIX 300 [Interacting]
     Active Substance: IOBITRIDOL
     Indication: ANGIOCARDIOGRAM
     Dosage: 1 DOSAGE FORM, TOTAL
     Route: 042
     Dates: start: 20190123
  3. FUROSEMIDE. [Suspect]
     Active Substance: FUROSEMIDE
     Indication: ACUTE CORONARY SYNDROME
     Dosage: 1 GRAM, QD
     Route: 048
     Dates: start: 20190123, end: 20190125

REACTIONS (4)
  - Acute kidney injury [Recovered/Resolved]
  - Anuria [Recovered/Resolved]
  - Renal tubular necrosis [Recovered/Resolved]
  - Drug interaction [Unknown]

NARRATIVE: CASE EVENT DATE: 20190124
